FAERS Safety Report 5337445-1 (Version None)
Quarter: 2007Q2

REPORT INFORMATION
  Report Type: 
  Country: None (occurrence: None)
  Receive Date: 20070529
  Receipt Date: 20070524
  Transmission Date: 20071010
  Serious: Yes (Hospitalization)
  Sender: FDA-Public Use
  Company Number: US-BOEHRINGER INGELHEIM PHARMACEUTICALS, INC.-2007-BP-04436PF

PATIENT
  Sex: Male
  Weight: 64 kg

DRUGS (4)
  1. SPIRIVA [Suspect]
     Indication: EMPHYSEMA
  2. CHANTIX [Suspect]
     Indication: SMOKING CESSATION THERAPY
     Route: 048
     Dates: start: 20070101
  3. ADVAIR DISKUS 100/50 [Concomitant]
  4. CHANTIX [Concomitant]
     Route: 048
     Dates: start: 20070101

REACTIONS (1)
  - EMPHYSEMA [None]
